FAERS Safety Report 19586411 (Version 1)
Quarter: 2021Q3

REPORT INFORMATION
  Report Type: Spontaneous
  Country: FR (occurrence: FR)
  Receive Date: 20210721
  Receipt Date: 20210721
  Transmission Date: 20211014
  Serious: Yes (Hospitalization)
  Sender: FDA-Public Use
  Company Number: FR-TEVA-2021-FR-1933260

PATIENT
  Age: 46 Year
  Sex: Female
  Weight: 39.1 kg

DRUGS (14)
  1. UVEDOSE [Concomitant]
     Active Substance: CHOLECALCIFEROL
     Indication: VITAMIN D DEFICIENCY
     Dosage: IN THE LONG TERM
  2. LAMPRENE [Suspect]
     Active Substance: CLOFAZIMINE
     Indication: MYCOBACTERIAL INFECTION
     Dosage: 50 MILLIGRAM DAILY; 50 MG / DAY:UNIT DOSE:1DOSAGEFORM
     Route: 048
     Dates: start: 20210503
  3. INNOVAIR 200/6 MICROGRAMMES/DOSE, SOLUTION POUR INHALATION EN FLACON P [Concomitant]
     Indication: CYSTIC FIBROSIS
     Dosage: LONG?TERM: 2 PUFFS IN THE MORNING AND IN THE EVENING:UNIT DOSE:4DOSAGEFORM:SOLUTION FOR INHALATION I
     Route: 055
  4. AMIKACINE [Suspect]
     Active Substance: AMIKACIN
     Indication: MYCOBACTERIAL INFECTION
     Dosage: 1 GRAM DAILY; 1 G / DAY
     Route: 042
     Dates: start: 20210503
  5. AZITHROMYCINE [Suspect]
     Active Substance: AZITHROMYCIN
     Indication: MYCOBACTERIAL INFECTION
     Dosage: 250 MILLIGRAM DAILY; 250 MG / DAY
     Route: 048
     Dates: start: 20210503
  6. FUNGIZONE [Concomitant]
     Active Substance: AMPHOTERICIN B
     Indication: ANTIFUNGAL PROPHYLAXIS
     Dosage: LONG TERM: 3 MOUTHWASHES / DAY:UNIT DOSE:3DOSAGEFORM:ORAL SUSPENSION
     Route: 048
  7. TIENAM [Suspect]
     Active Substance: CILASTATIN SODIUM\IMIPENEM
     Indication: MYCOBACTERIAL INFECTION
     Dosage: 3 GRAM DAILY; 1 G 3X / DAY
     Route: 042
     Dates: start: 20210503
  8. INEXIUM 40 MG, COMPRIME GASTRO?RESISTANT [Concomitant]
     Active Substance: ESOMEPRAZOLE MAGNESIUM
     Indication: GASTRITIS PROPHYLAXIS
     Dosage: IN THE LONG TERM:UNIT DOSE:40MILLIGRAM
     Route: 048
  9. A 313 [Concomitant]
     Active Substance: RETINOL
     Indication: VITAMIN SUPPLEMENTATION
     Dosage: IN THE LONG TERM:UNIT DOSE:2DOSAGEFORM
     Route: 048
  10. PULMOZYME 2500 U/2,5 ML, SOLUTION POUR INHALATION PAR NEBULISEUR EN AM [Concomitant]
     Indication: CYSTIC FIBROSIS
     Dosage: LONG TERM: 1 AEROSOL / DAY:UNIT DOSE:1DOSAGEFORM:SOLUTION FOR INHALATION BY NEBULIZER IN AMPOULE
     Route: 055
  11. LINEZOLIDE [Suspect]
     Active Substance: LINEZOLID
     Indication: MYCOBACTERIAL INFECTION
     Dosage: 600 MILLIGRAM DAILY; 600 MG / DAY
     Route: 048
     Dates: start: 20210503
  12. TARDYFERON [Concomitant]
     Active Substance: FERROUS SULFATE
     Indication: VITAMIN SUPPLEMENTATION
     Dosage: IN THE LONG TERM:UNIT DOSE:2DOSAGEFORM
     Route: 048
  13. VENTOLINE 2,5 MG/2,5 ML, SOLUTION POUR INHALATION PAR NEBULISEUR EN RE [Concomitant]
     Indication: CYSTIC FIBROSIS
     Dosage: IN THE LONG TERM:UNIT DOSE:2DOSAGEFORM:SOLUTION FOR INHALATION BY NEBULIZER IN SINGLE?DOSE CONTAINER
     Route: 055
  14. CREON 12000 U, GRANULES GASTRO?RESISTANTS EN GELULE [Concomitant]
     Indication: CYSTIC FIBROSIS
     Dosage: LONG?TERM:UNIT DOSE:5DOSAGEFORM
     Route: 048

REACTIONS (1)
  - Cardiac failure acute [Recovering/Resolving]

NARRATIVE: CASE EVENT DATE: 20210530
